FAERS Safety Report 15985020 (Version 1)
Quarter: 2019Q1

REPORT INFORMATION
  Report Type: Spontaneous
  Country: TW (occurrence: TW)
  Receive Date: 20190220
  Receipt Date: 20190220
  Transmission Date: 20190418
  Serious: Yes (Hospitalization, Other)
  Sender: FDA-Public Use
  Company Number: TW-BAUSCH-BL-2019-005034

PATIENT
  Age: 21 Year
  Sex: Female

DRUGS (2)
  1. METFORMIN [Suspect]
     Active Substance: METFORMIN HYDROCHLORIDE
     Indication: POLYCYSTIC OVARIES
     Route: 065
     Dates: start: 201808, end: 201809
  2. DROSPIRENONE [Suspect]
     Active Substance: DROSPIRENONE
     Indication: POLYCYSTIC OVARIES
     Route: 065
     Dates: start: 201808, end: 201809

REACTIONS (2)
  - Insomnia [Recovered/Resolved]
  - Psychotic disorder [Recovered/Resolved]

NARRATIVE: CASE EVENT DATE: 201809
